FAERS Safety Report 11885331 (Version 1)
Quarter: 2015Q4

REPORT INFORMATION
  Report Type: Spontaneous
  Country: US (occurrence: None)
  Receive Date: 20151231
  Receipt Date: 20151231
  Transmission Date: 20160305
  Serious: Yes (Life-Threatening, Hospitalization, Disabling)
  Sender: FDA-Public Use
  Company Number: None

PATIENT
  Age: 49 Year
  Sex: Female
  Weight: 118.84 kg

DRUGS (6)
  1. LAMICTAL [Concomitant]
     Active Substance: LAMOTRIGINE
  2. MIRENA [Suspect]
     Active Substance: LEVONORGESTREL
     Dates: start: 20070316, end: 20150407
  3. KEPPRA [Concomitant]
     Active Substance: LEVETIRACETAM
  4. POTASSIUM [Concomitant]
     Active Substance: POTASSIUM
  5. FAMOTIDINE. [Concomitant]
     Active Substance: FAMOTIDINE
  6. CHLORTHALIDONE. [Concomitant]
     Active Substance: CHLORTHALIDONE

REACTIONS (24)
  - Vaginal discharge [None]
  - Nephrolithiasis [None]
  - Sepsis [None]
  - Confusional state [None]
  - Memory impairment [None]
  - Dizziness [None]
  - Disturbance in attention [None]
  - Seizure [None]
  - Headache [None]
  - Loss of employment [None]
  - Blindness [None]
  - Road traffic accident [None]
  - Anxiety [None]
  - Nervousness [None]
  - Abdominal pain [None]
  - Menorrhagia [None]
  - Chest discomfort [None]
  - Device dislocation [None]
  - Tinnitus [None]
  - Asthenia [None]
  - Alopecia [None]
  - Impaired driving ability [None]
  - Impaired work ability [None]
  - Loss of libido [None]

NARRATIVE: CASE EVENT DATE: 20151230
